FAERS Safety Report 17586654 (Version 1)
Quarter: 2020Q1

REPORT INFORMATION
  Report Type: Spontaneous
  Country: US (occurrence: US)
  Receive Date: 20200326
  Receipt Date: 20200326
  Transmission Date: 20200409
  Serious: Yes (Hospitalization, Disabling)
  Sender: FDA-Public Use
  Company Number: None

PATIENT
  Age: 25 Year
  Sex: Female
  Weight: 63.5 kg

DRUGS (4)
  1. DICLOFENAC [Concomitant]
     Active Substance: DICLOFENAC
  2. KYLEENA [Suspect]
     Active Substance: LEVONORGESTREL
     Dates: start: 20190822, end: 20200124
  3. ZYRTEC [Concomitant]
     Active Substance: CETIRIZINE HYDROCHLORIDE
  4. BENEFIBER [Concomitant]
     Active Substance: STARCH, WHEAT

REACTIONS (9)
  - Depression [None]
  - Bacterial vulvovaginitis [None]
  - Constipation [None]
  - Haemorrhagic ovarian cyst [None]
  - Weight increased [None]
  - Anxiety [None]
  - Irritable bowel syndrome [None]
  - Ovarian cyst [None]
  - Pain [None]

NARRATIVE: CASE EVENT DATE: 20191101
